FAERS Safety Report 11953865 (Version 1)
Quarter: 2016Q1

REPORT INFORMATION
  Report Type: Spontaneous
  Country: US (occurrence: US)
  Receive Date: 20160125
  Receipt Date: 20160125
  Transmission Date: 20160526
  Serious: No
  Sender: FDA-Public Use
  Company Number: US-CELGENEUS-USA-2016014320

PATIENT
  Sex: Female

DRUGS (2)
  1. OTEZLA [Suspect]
     Active Substance: APREMILAST
     Indication: PSORIASIS
     Dosage: STARTER PACK: 10MG, 20MG, 30MG
     Route: 048
  2. DERMASMOOTHE F/S [Concomitant]
     Indication: PSORIASIS
     Route: 061
     Dates: start: 20151228

REACTIONS (1)
  - Adverse drug reaction [Unknown]
